FAERS Safety Report 9789194 (Version 3)
Quarter: 2014Q1

REPORT INFORMATION
  Report Type: Report from Study
  Country: PL (occurrence: PL)
  Receive Date: 20131230
  Receipt Date: 20140319
  Transmission Date: 20141002
  Serious: Yes (Death, Hospitalization)
  Sender: FDA-Public Use
  Company Number: PL-BRISTOL-MYERS SQUIBB COMPANY-19937051

PATIENT
  Age: 68 Year
  Sex: Female

DRUGS (8)
  1. CISPLATIN [Suspect]
     Indication: SMALL CELL LUNG CANCER
     Dosage: 1DF: 143 UNITS NOS
     Route: 042
     Dates: start: 20131210, end: 20131210
  2. ETOPOSIDE [Suspect]
     Indication: SMALL CELL LUNG CANCER
     Dosage: LAST DOSE:12DEC13?1DF: 190, UNIT:NOS
     Route: 042
     Dates: start: 20131210, end: 20131212
  3. TERTENSIF [Concomitant]
     Dates: start: 2003, end: 20131225
  4. VALSACOR [Concomitant]
     Dates: start: 2003, end: 20131225
  5. ATORVASTATIN [Concomitant]
     Dates: start: 2003, end: 20131225
  6. TRAMAL [Concomitant]
     Dates: start: 201311, end: 20131225
  7. OMEPRAZOLE [Concomitant]
     Dates: start: 201311, end: 20131225
  8. LOKREN [Concomitant]
     Dates: start: 2003, end: 20131225

REACTIONS (2)
  - Multi-organ failure [Fatal]
  - Septic shock [Fatal]
